FAERS Safety Report 7989233-5 (Version None)
Quarter: 2011Q4

REPORT INFORMATION
  Report Type: 
  Country: None (occurrence: None)
  Receive Date: 20111007
  Receipt Date: 20110831
  Transmission Date: 20120403
  Serious: No
  Sender: FDA-Public Use
  Company Number: 2011HGS-002368

PATIENT
  Age: 54 Year
  Sex: Female
  Weight: 101.6057 kg

DRUGS (10)
  1. BENLYSTA [Suspect]
     Indication: SYSTEMIC LUPUS ERYTHEMATOSUS
     Dosage: 10 MG/KG, 1 IN 28 D, INTRAVENOUS DRIP
     Route: 041
     Dates: start: 20110617, end: 20110617
  2. GABAPENTIN [Concomitant]
  3. CEPHALEXIN [Concomitant]
  4. TRAZODONE (TRAZODONE) (TRAZODONE) [Concomitant]
  5. BENADRYL (DIPHENHYDRAMINE HYDROCHLORIDE) (DIPHENHYDRAMINE HYDROCHLORID [Concomitant]
  6. BENLYSTA [Suspect]
  7. NIFEDIPINE ER (NIFEDIPINE) (NIFEDIPINE) [Concomitant]
  8. PREDNISONE [Concomitant]
  9. OXCARBAZEPINE (OXCARBAZEPNIE) (OXCARBAZEPINE) [Concomitant]
  10. EFFEXOR (VENLAFAXINE HYDROCHLORIDE) (VENLAFAXINE HYDROCHLORIDE) [Concomitant]

REACTIONS (9)
  - HEADACHE [None]
  - SCREAMING [None]
  - AGITATION [None]
  - SWELLING FACE [None]
  - SPEECH DISORDER [None]
  - SWOLLEN TONGUE [None]
  - ORAL PAIN [None]
  - OEDEMA MOUTH [None]
  - SLEEP TALKING [None]
